FAERS Safety Report 7381947-3 (Version None)
Quarter: 2011Q1

REPORT INFORMATION
  Report Type: 
  Country: None (occurrence: None)
  Receive Date: 20110329
  Receipt Date: 20101109
  Transmission Date: 20110831
  Serious: Yes (Other)
  Sender: FDA-Public Use
  Company Number: US-BAYER-201041744NA

PATIENT
  Sex: Female
  Weight: 72.562 kg

DRUGS (16)
  1. COZAAR [Concomitant]
     Indication: PRODUCT USED FOR UNKNOWN INDICATION
     Dosage: UNK
     Dates: start: 20000101
  2. NEOSPORIN [BACITRACIN,NEOMYCIN SULFATE,POLYMYXIN B SULFATE] [Concomitant]
     Indication: BACK PAIN
  3. CELEBREX [Concomitant]
     Indication: ARTHRITIS
  4. NAPROSYN [Concomitant]
     Indication: BACK PAIN
     Dosage: UNK
     Dates: start: 20000101
  5. TRASYLOL [Suspect]
     Indication: CORONARY ARTERY BYPASS
     Route: 042
     Dates: start: 20020314
  6. CORGARD [Concomitant]
     Indication: PRODUCT USED FOR UNKNOWN INDICATION
     Dosage: UNK
     Dates: start: 20000101
  7. MOTRIN [Concomitant]
     Indication: BACK PAIN
     Dosage: UNK
     Dates: start: 19800101
  8. PLAVIX [Concomitant]
     Indication: PRODUCT USED FOR UNKNOWN INDICATION
     Dosage: UNK
     Dates: start: 20000101
  9. CELEBREX [Concomitant]
     Indication: BACK PAIN
  10. PROZAC [Concomitant]
     Indication: PRODUCT USED FOR UNKNOWN INDICATION
     Dosage: UNK
  11. ALPRAZOLAM [Concomitant]
     Indication: PRODUCT USED FOR UNKNOWN INDICATION
  12. NAPROSYN [Concomitant]
     Indication: ARTHRITIS
  13. ACETYLSALICYLIC ACID SRT [Concomitant]
     Indication: PRODUCT USED FOR UNKNOWN INDICATION
     Dosage: UNK
     Dates: start: 20000101
  14. LISINOPRIL [Concomitant]
     Indication: HYPERTENSION
     Dosage: UNK
     Dates: start: 20000101
  15. NEOSPORIN [BACITRACIN,NEOMYCIN SULFATE,POLYMYXIN B SULFATE] [Concomitant]
     Indication: ARTHRITIS
  16. MOTRIN [Concomitant]
     Indication: ARTHRITIS

REACTIONS (9)
  - EMOTIONAL DISTRESS [None]
  - STRESS [None]
  - UNEVALUABLE EVENT [None]
  - FEAR [None]
  - PAIN [None]
  - DEPRESSION [None]
  - RENAL FAILURE [None]
  - ANXIETY [None]
  - INJURY [None]
